FAERS Safety Report 11134649 (Version 2)
Quarter: 2015Q2

REPORT INFORMATION
  Report Type: Spontaneous
  Country: SE (occurrence: SE)
  Receive Date: 20150525
  Receipt Date: 20150601
  Transmission Date: 20150821
  Serious: Yes (Other)
  Sender: FDA-Public Use
  Company Number: SE-ABBVIE-15K-150-1393986-00

PATIENT
  Age: 6 Year
  Sex: Male

DRUGS (8)
  1. HUMIRA [Suspect]
     Active Substance: ADALIMUMAB
     Indication: JUVENILE IDIOPATHIC ARTHRITIS
     Route: 058
     Dates: start: 201408
  2. TIMOSAN [Concomitant]
     Active Substance: TIMOLOL MALEATE
     Indication: IRITIS
  3. ISOPTO MAXIDEX [Concomitant]
     Indication: IRITIS
  4. CYCLOPENTOLAT [Concomitant]
     Indication: IRITIS
  5. FOLACIN [Concomitant]
     Active Substance: FOLIC ACID
     Indication: PRODUCT USED FOR UNKNOWN INDICATION
  6. ULTRACORTENOL [Concomitant]
     Indication: IRITIS
  7. ISOPTO ATROPIN [Concomitant]
     Indication: IRITIS
  8. METOTAB [Concomitant]
     Active Substance: METHOTREXATE SODIUM
     Indication: PRODUCT USED FOR UNKNOWN INDICATION

REACTIONS (2)
  - Hearing impaired [Not Recovered/Not Resolved]
  - Otitis media [Unknown]

NARRATIVE: CASE EVENT DATE: 201502
